FAERS Safety Report 20865427 (Version 1)
Quarter: 2022Q2

REPORT INFORMATION
  Report Type: Spontaneous
  Country: US (occurrence: US)
  Receive Date: 20220524
  Receipt Date: 20220524
  Transmission Date: 20220720
  Serious: Yes (Other)
  Sender: FDA-Public Use
  Company Number: US-BRISTOL-MYERS SQUIBB COMPANY-2022-038050

PATIENT
  Age: 70 Year
  Sex: Male
  Weight: 77.110 kg

DRUGS (8)
  1. INREBIC [Suspect]
     Active Substance: FEDRATINIB HYDROCHLORIDE
     Indication: Myelofibrosis
     Route: 048
     Dates: start: 20220127
  2. ACYCLOVIR [Concomitant]
     Active Substance: ACYCLOVIR
     Indication: Product used for unknown indication
     Route: 065
  3. DEXTRAN [Concomitant]
     Active Substance: DEXTRAN
     Indication: Product used for unknown indication
     Route: 065
  4. TRAMADOL [Concomitant]
     Active Substance: TRAMADOL
     Indication: Product used for unknown indication
     Route: 065
  5. DOCUSATE [Concomitant]
     Active Substance: DOCUSATE
     Indication: Product used for unknown indication
     Route: 065
  6. MIRALAX [Concomitant]
     Active Substance: POLYETHYLENE GLYCOL 3350
     Indication: Product used for unknown indication
     Route: 065
  7. BUPRENORPHINE [Concomitant]
     Active Substance: BUPRENORPHINE
     Indication: Product used for unknown indication
     Route: 065
  8. ONDANSETRON [Concomitant]
     Active Substance: ONDANSETRON
     Indication: Product used for unknown indication
     Route: 065

REACTIONS (4)
  - Constipation [Unknown]
  - Splenomegaly [Unknown]
  - Neoplasm malignant [Unknown]
  - Nausea [Unknown]
